FAERS Safety Report 6566559-3 (Version None)
Quarter: 2010Q1

REPORT INFORMATION
  Report Type: 
  Country: None (occurrence: None)
  Receive Date: 20100202
  Receipt Date: 20100121
  Transmission Date: 20100710
  Serious: Yes (Hospitalization)
  Sender: FDA-Public Use
  Company Number: ES-PFIZER INC-2010008336

PATIENT
  Age: 56 Year
  Sex: Male

DRUGS (3)
  1. FLUCONAZOLE [Suspect]
     Indication: PERITONITIS
     Dosage: UNK
     Route: 042
     Dates: start: 20090208, end: 20090227
  2. TAZOCEL [Suspect]
     Indication: PERITONITIS
     Dosage: UNK
     Route: 042
     Dates: start: 20090208, end: 20090227
  3. VANCOMYCIN [Suspect]
     Indication: PERITONITIS
     Dosage: UNK
     Route: 042
     Dates: start: 20090208, end: 20090224

REACTIONS (2)
  - EOSINOPHILIA [None]
  - ERYTHEMA MULTIFORME [None]
